FAERS Safety Report 8372659-8 (Version None)
Quarter: 2012Q2

REPORT INFORMATION
  Report Type: 
  Country: None (occurrence: None)
  Receive Date: 20120521
  Receipt Date: 20120509
  Transmission Date: 20120825
  Serious: No
  Sender: FDA-Public Use
  Company Number: US-B.I. PHARMACEUTICALS,INC./RIDGEFIELD-2012-BP-10455BP

PATIENT
  Age: 66 Year
  Sex: Male

DRUGS (1)
  1. AGGRENOX [Suspect]
     Indication: PROPHYLAXIS
     Route: 048
     Dates: start: 20110501

REACTIONS (2)
  - NEUTROPHIL COUNT DECREASED [None]
  - BAND NEUTROPHIL COUNT INCREASED [None]
